FAERS Safety Report 6541052-2 (Version None)
Quarter: 2010Q1

REPORT INFORMATION
  Report Type: 
  Country: None (occurrence: None)
  Receive Date: 20100118
  Receipt Date: 20100111
  Transmission Date: 20100710
  Serious: No
  Sender: FDA-Public Use
  Company Number: US-B.I. PHARMACEUTICALS,INC./RIDGEFIELD-2010-BP-00400BP

PATIENT

DRUGS (1)
  1. MICARDIS [Suspect]

REACTIONS (1)
  - BLOOD PRESSURE INCREASED [None]
